FAERS Safety Report 5816767-1 (Version None)
Quarter: 2008Q3

REPORT INFORMATION
  Report Type: 
  Country: None (occurrence: None)
  Receive Date: 20080721
  Receipt Date: 20080711
  Transmission Date: 20090109
  Serious: Yes (Hospitalization)
  Sender: FDA-Public Use
  Company Number: JP-BOEHRINGER INGELHEIM GMBH, GERMANY-2008-BP-11247YA

PATIENT
  Sex: Female

DRUGS (2)
  1. TAMSULOSIN HCL [Suspect]
     Route: 048
  2. ARICEPT [Concomitant]
     Route: 048

REACTIONS (1)
  - MIOSIS [None]
